APPROVED DRUG PRODUCT: HEPARIN SODIUM 25,000 UNITS IN DEXTROSE 5% IN PLASTIC CONTAINER
Active Ingredient: HEPARIN SODIUM
Strength: 5,000 UNITS/100ML
Dosage Form/Route: INJECTABLE;INJECTION
Application: N019339 | Product #004 | TE Code: AP
Applicant: HOSPIRA INC
Approved: Mar 27, 1985 | RLD: No | RS: No | Type: RX